FAERS Safety Report 14322330 (Version 1)
Quarter: 2017Q4

REPORT INFORMATION
  Report Type: Report from Study
  Country: PT (occurrence: PT)
  Receive Date: 20171225
  Receipt Date: 20171225
  Transmission Date: 20180321
  Serious: Yes (Life-Threatening)
  Sender: FDA-Public Use
  Company Number: PHHY2017PT192381

PATIENT
  Age: 58 Year
  Sex: Female

DRUGS (1)
  1. GILENYA [Suspect]
     Active Substance: FINGOLIMOD HYDROCHLORIDE
     Indication: MULTIPLE SCLEROSIS
     Dosage: 0.5 MG, QD
     Route: 048
     Dates: start: 20170925, end: 201711

REACTIONS (15)
  - Vomiting [Unknown]
  - Abdominal discomfort [Unknown]
  - Generalised oedema [Unknown]
  - Alanine aminotransferase increased [Unknown]
  - Multiple sclerosis relapse [Not Recovered/Not Resolved]
  - Gamma-glutamyltransferase increased [Unknown]
  - Acne [Unknown]
  - Asthenia [Unknown]
  - Anaphylactic reaction [Recovering/Resolving]
  - Monocyte count increased [Unknown]
  - Blood urea increased [Unknown]
  - Pruritus [Unknown]
  - Generalised erythema [Unknown]
  - Urticaria [Unknown]
  - Pyrexia [Unknown]
